FAERS Safety Report 5132144-3 (Version None)
Quarter: 2006Q4

REPORT INFORMATION
  Report Type: 
  Country: None (occurrence: None)
  Receive Date: 20061017
  Receipt Date: 20061004
  Transmission Date: 20070319
  Serious: Yes (Other)
  Sender: FDA-Public Use
  Company Number: 2006124080

PATIENT
  Sex: Female
  Weight: 68.0396 kg

DRUGS (9)
  1. DILANTIN [Suspect]
     Indication: CONVULSION
     Dosage: 300 MG (2 IN 1 D)
     Dates: start: 20000101
  2. METHOTREXATE [Suspect]
     Indication: RHEUMATOID ARTHRITIS
  3. WARFARIN SODIUM [Concomitant]
  4. NEXIUM [Concomitant]
  5. TOPROL-XL [Concomitant]
  6. HYDROCHLOROTHIAZIDE [Concomitant]
  7. PAXIL [Concomitant]
  8. FOLIC ACID [Concomitant]
  9. VITAMIN D [Concomitant]

REACTIONS (3)
  - CONVULSION [None]
  - DRUG INTERACTION [None]
  - RHEUMATOID ARTHRITIS [None]
